FAERS Safety Report 4657644-1 (Version None)
Quarter: 2005Q2

REPORT INFORMATION
  Report Type: 
  Country: None (occurrence: None)
  Receive Date: 20050510
  Receipt Date: 20050315
  Transmission Date: 20051028
  Serious: Yes (Other)
  Sender: FDA-Public Use
  Company Number: 200512128US

PATIENT
  Sex: Female

DRUGS (5)
  1. KETEK [Suspect]
     Indication: SINUSITIS
     Dates: start: 20050217
  2. MUCINEX [Concomitant]
     Dosage: DOSE: UNKNOWN
  3. IBUPROFEN [Concomitant]
     Dosage: DOSE: UNKNOWN
  4. SUDAFED 12 HOUR [Concomitant]
     Dosage: DOSE: UNKNOWN
  5. ROBITUSSIN [Concomitant]
     Dosage: DOSE: UNKNOWN

REACTIONS (17)
  - ABDOMINAL PAIN [None]
  - ALANINE AMINOTRANSFERASE INCREASED [None]
  - ASCITES [None]
  - ASPARTATE AMINOTRANSFERASE INCREASED [None]
  - BLOOD PRESSURE DECREASED [None]
  - CHILLS [None]
  - DRUG TOXICITY [None]
  - FATIGUE [None]
  - GALLBLADDER DISORDER [None]
  - HEPATIC FAILURE [None]
  - HEPATITIS ACUTE [None]
  - HEPATOMEGALY [None]
  - INFLUENZA [None]
  - NAUSEA [None]
  - PLATELET COUNT DECREASED [None]
  - PLEURAL EFFUSION [None]
  - PYREXIA [None]
